FAERS Safety Report 9604417 (Version 4)
Quarter: 2015Q1

REPORT INFORMATION
  Report Type: Spontaneous
  Country: FR (occurrence: FR)
  Receive Date: 20131008
  Receipt Date: 20150312
  Transmission Date: 20150721
  Serious: Yes (Hospitalization, Other)
  Sender: FDA-Public Use
  Company Number: FR-009507513-1309FRA013580

PATIENT
  Age: 59 Year
  Sex: Female

DRUGS (16)
  1. VESANOID [Suspect]
     Active Substance: TRETINOIN
     Dosage: 32.5 MG, QD
     Route: 048
     Dates: start: 20130626, end: 20130709
  2. SERESTA [Concomitant]
     Active Substance: OXAZEPAM
     Dosage: 1 DF, TID
     Route: 048
     Dates: start: 201307
  3. NORSET [Suspect]
     Active Substance: MIRTAZAPINE
     Indication: PRODUCT USED FOR UNKNOWN INDICATION
     Dosage: 1 DF, QD
     Route: 048
     Dates: end: 20130909
  4. VESANOID [Suspect]
     Active Substance: TRETINOIN
     Dosage: UNK
     Route: 048
     Dates: start: 20130828, end: 20130909
  5. ZYVOXID [Concomitant]
     Active Substance: LINEZOLID
     Indication: PRODUCT USED FOR UNKNOWN INDICATION
     Dosage: 1 DF, BID
     Route: 048
     Dates: start: 20130827, end: 20130904
  6. VESANOID [Suspect]
     Active Substance: TRETINOIN
     Indication: PRODUCT USED FOR UNKNOWN INDICATION
     Dosage: 70 MG, QD
     Route: 048
     Dates: start: 20130423, end: 20130502
  7. VESANOID [Suspect]
     Active Substance: TRETINOIN
     Dosage: UNK
     Dates: start: 20131202
  8. TRISENOX [Suspect]
     Active Substance: ARSENIC TRIOXIDE
     Dosage: UNK
     Route: 042
     Dates: start: 20130626, end: 20130905
  9. PROZAC [Concomitant]
     Active Substance: FLUOXETINE HYDROCHLORIDE
     Indication: PRODUCT USED FOR UNKNOWN INDICATION
     Dosage: 40 MG, QD
     Route: 048
     Dates: end: 20130909
  10. CARDENSIEL [Concomitant]
     Active Substance: BISOPROLOL FUMARATE
     Dosage: UNK
     Route: 048
  11. ZELITREX [Suspect]
     Active Substance: VALACYCLOVIR HYDROCHLORIDE
     Indication: ANTIVIRAL PROPHYLAXIS
     Dosage: 1 DF, QD
     Route: 048
     Dates: start: 201306, end: 20130909
  12. VESANOID [Suspect]
     Active Substance: TRETINOIN
     Dosage: UNK
     Route: 048
     Dates: start: 20130524, end: 20130529
  13. INEXIUM [Concomitant]
     Active Substance: ESOMEPRAZOLE
     Dosage: UNK
     Route: 048
  14. VESANOID [Suspect]
     Active Substance: TRETINOIN
     Dosage: UNK
     Route: 048
     Dates: start: 20130508, end: 20130515
  15. VESANOID [Suspect]
     Active Substance: TRETINOIN
     Dosage: 32.5 MG, QD
     Route: 048
     Dates: start: 20130725, end: 20130807
  16. IMOVANE [Concomitant]
     Active Substance: ZOPICLONE
     Dosage: 1 DF, QD
     Route: 048
     Dates: start: 201306

REACTIONS (1)
  - Acute kidney injury [Recovered/Resolved with Sequelae]

NARRATIVE: CASE EVENT DATE: 20130902
